FAERS Safety Report 9557907 (Version 1)
Quarter: 2013Q3

REPORT INFORMATION
  Report Type: Spontaneous
  Country: US (occurrence: None)
  Receive Date: 20130726
  Receipt Date: 20130726
  Transmission Date: 20140515
  Serious: Yes (Hospitalization)
  Sender: FDA-Public Use
  Company Number: UTC-027150

PATIENT
  Age: 4 Year
  Sex: Female
  Weight: 17.3 kg

DRUGS (4)
  1. REMODULIN [Suspect]
     Indication: PULMONARY ARTERIAL HYPERTENSION
     Dosage: 354.096 UG/KG (0.2459 UG/KG,1 IN 1 MIN),INTRAVENOUS DRIP
     Dates: start: 20090603
  2. REMODULIN [Suspect]
     Indication: PULMONARY HYPERTENSION
     Dosage: 354.096 UG/KG (0.2459 UG/KG,1 IN 1 MIN),INTRAVENOUS DRIP
     Dates: start: 20090603
  3. REVATIO (SILDENAFIL CITRATE) (SILDENAFIL CITRATE) [Concomitant]
  4. LETAIRIS (AMBRISENTAN) (TABLETS) [Concomitant]

REACTIONS (1)
  - Pulmonary hypertension [None]
